FAERS Safety Report 7888637-9 (Version None)
Quarter: 2011Q4

REPORT INFORMATION
  Report Type: 
  Country: None (occurrence: None)
  Receive Date: 20111103
  Receipt Date: 20111020
  Transmission Date: 20120403
  Serious: Yes (Hospitalization)
  Sender: FDA-Public Use
  Company Number: AT-ROCHE-1005403

PATIENT
  Age: 52 Year
  Sex: Male
  Weight: 90 kg

DRUGS (6)
  1. VEMURAFENIB [Suspect]
     Indication: METASTATIC MALIGNANT MELANOMA
     Dosage: DRUG INTERRUPTED, 8 TABLETS PER DAY
     Route: 048
     Dates: start: 20110729, end: 20111017
  2. UNASYN [Concomitant]
     Dates: start: 20111014, end: 20111018
  3. DIAZEPAM [Concomitant]
     Dates: start: 20111015, end: 20111015
  4. ENOXAPARIN [Concomitant]
     Dates: start: 20111015, end: 20111018
  5. METOCLOPRAMIDE HYDROCHLORIDE [Concomitant]
     Dates: start: 20111015, end: 20111017
  6. ELOMEL [Concomitant]
     Dates: start: 20111015, end: 20111016

REACTIONS (1)
  - BLOOD CREATININE INCREASED [None]
